FAERS Safety Report 10877838 (Version 1)
Quarter: 2015Q1

REPORT INFORMATION
  Report Type: Spontaneous
  Country: US (occurrence: US)
  Receive Date: 20150302
  Receipt Date: 20150302
  Transmission Date: 20150721
  Serious: Yes (Other)
  Sender: FDA-Public Use
  Company Number: US-PFIZER INC-2015075467

PATIENT
  Sex: Female

DRUGS (1)
  1. XANAX [Suspect]
     Active Substance: ALPRAZOLAM
     Indication: NERVOUSNESS
     Dosage: 2 MG, 3X/DAY
     Route: 048
     Dates: start: 1985, end: 20150217

REACTIONS (3)
  - Apparent death [Unknown]
  - Drug dependence [Unknown]
  - Grief reaction [Unknown]
